FAERS Safety Report 7194395-6 (Version None)
Quarter: 2010Q4

REPORT INFORMATION
  Report Type: 
  Country: None (occurrence: None)
  Receive Date: 20101223
  Receipt Date: 20101215
  Transmission Date: 20110411
  Serious: Yes (Hospitalization)
  Sender: FDA-Public Use
  Company Number: US-ELI_LILLY_AND_COMPANY-US201012001525

PATIENT
  Sex: Male

DRUGS (3)
  1. HUMALOG [Suspect]
     Indication: DIABETES MELLITUS
     Dosage: UNK, 3/D
     Dates: start: 20051206
  2. HUMALOG [Suspect]
     Dosage: UNK, AS NEEDED
     Dates: start: 20051206
  3. LANTUS [Concomitant]
     Dosage: 60 U, UNK

REACTIONS (5)
  - DIABETIC FOOT [None]
  - EXOSTOSIS [None]
  - FOOT DEFORMITY [None]
  - HEARING IMPAIRED [None]
  - LOCALISED INFECTION [None]
